FAERS Safety Report 20625514 (Version 2)
Quarter: 2022Q2

REPORT INFORMATION
  Report Type: Spontaneous
  Country: RU (occurrence: RU)
  Receive Date: 20220323
  Receipt Date: 20220605
  Transmission Date: 20220721
  Serious: Yes (Other)
  Sender: FDA-Public Use
  Company Number: RU-002147023-NVSC2022RU062325

PATIENT
  Age: 36 Year
  Sex: Female

DRUGS (4)
  1. ERENUMAB [Suspect]
     Active Substance: ERENUMAB
     Indication: Migraine
     Dosage: 70 MILLIGRAM, QMO (ONCE A MONTH)
     Route: 058
  2. SUMATRIPTAN [Concomitant]
     Active Substance: SUMATRIPTAN
     Indication: Headache
     Dosage: UNK, QD (50-100 MG, QD (AS NEEDED (DURING EPISODES OF SEVERE HEADACHE))
     Route: 065
  3. ELETRIPTAN [Concomitant]
     Active Substance: ELETRIPTAN
     Indication: Headache
     Dosage: UNK, QD (40-80, QD (AS NEEDED (DURING EPISODES OF SEVERE HEADACHE))
     Route: 065
  4. AMIGRENIN [Concomitant]
     Indication: Headache
     Dosage: AS NEEDED
     Route: 065

REACTIONS (2)
  - Syncope [Unknown]
  - Illness [Unknown]
